FAERS Safety Report 4342093-6 (Version None)
Quarter: 2004Q1

REPORT INFORMATION
  Report Type: 
  Country: None (occurrence: None)
  Receive Date: 20040329
  Receipt Date: 20031223
  Transmission Date: 20041129
  Serious: No
  Sender: FDA-Public Use
  Company Number: 03P-163-0245466-00

PATIENT
  Age: 64 Year
  Sex: Female

DRUGS (8)
  1. HUMIRA [Suspect]
     Indication: RHEUMATOID ARTHRITIS
     Dosage: 40 M G, 1 IN 2 WK, SUBCUTANEOUS
     Route: 058
     Dates: start: 20031028
  2. GLIBOMET [Concomitant]
  3. ROSIGLITAZONE MALEATE [Concomitant]
  4. TELMISARTAN [Concomitant]
  5. BUCINDOLOL HYDROCHLORIDE [Concomitant]
  6. LANSOPRAZOLE [Concomitant]
  7. ASPIRIN [Concomitant]
  8. PERINDOPRIL ERBUMINE [Concomitant]

REACTIONS (3)
  - COUGH [None]
  - NASAL CONGESTION [None]
  - PULMONARY CONGESTION [None]
